FAERS Safety Report 23360755 (Version 2)
Quarter: 2024Q1

REPORT INFORMATION
  Report Type: Other
  Country: CR (occurrence: CR)
  Receive Date: 20240103
  Receipt Date: 20240202
  Transmission Date: 20240410
  Serious: Yes (Life-Threatening, Hospitalization, Other)
  Sender: FDA-Public Use
  Company Number: CR-002147023-PHHY2016CR126281

PATIENT
  Age: 62 Year
  Sex: Female

DRUGS (18)
  1. XOLAIR [Suspect]
     Active Substance: OMALIZUMAB
     Indication: Emphysema
     Route: 065
     Dates: start: 20160608
  2. XOLAIR [Suspect]
     Active Substance: OMALIZUMAB
     Indication: Pulmonary fibrosis
     Route: 058
     Dates: start: 20160831
  3. XOLAIR [Suspect]
     Active Substance: OMALIZUMAB
     Indication: Asthma
     Route: 058
     Dates: start: 20170607
  4. XOLAIR [Suspect]
     Active Substance: OMALIZUMAB
     Route: 058
  5. XOLAIR [Suspect]
     Active Substance: OMALIZUMAB
     Route: 058
     Dates: start: 20170705
  6. XOLAIR [Suspect]
     Active Substance: OMALIZUMAB
     Route: 065
  7. NOVOLIN R [Concomitant]
     Active Substance: INSULIN HUMAN
     Indication: Product used for unknown indication
     Dosage: 6 U, QD
     Route: 058
  8. IRBESARTAN [Concomitant]
     Active Substance: IRBESARTAN
     Indication: Product used for unknown indication
     Dosage: 150 MG, BID
     Route: 048
  9. FLUOXETINE [Concomitant]
     Active Substance: FLUOXETINE HYDROCHLORIDE
     Indication: Product used for unknown indication
     Dosage: 40 MG, BID
     Route: 048
  10. MONTELUKAST [Concomitant]
     Active Substance: MONTELUKAST SODIUM
     Indication: Product used for unknown indication
     Dosage: QHS
     Route: 048
  11. LORATADINE [Concomitant]
     Active Substance: LORATADINE
     Indication: Product used for unknown indication
     Dosage: 1 DF, QD
     Route: 048
  12. THEOPHYLLINE [Concomitant]
     Active Substance: THEOPHYLLINE
     Indication: Product used for unknown indication
     Dosage: 300 MG, QD
     Route: 048
  13. THEOPHYLLINE [Concomitant]
     Active Substance: THEOPHYLLINE
     Indication: Productive cough
  14. ALBUTEROL [Concomitant]
     Active Substance: ALBUTEROL
     Indication: Product used for unknown indication
     Dosage: 2 DF (PUFFS), Q8H
     Route: 065
  15. ALBUTEROL [Concomitant]
     Active Substance: ALBUTEROL
     Indication: Productive cough
     Dosage: AS TREATMENT DRUG
  16. ATROVENT [Concomitant]
     Active Substance: IPRATROPIUM BROMIDE
     Indication: Product used for unknown indication
     Dosage: 4 DF (PUFFS), Q8H
     Route: 065
  17. ATROVENT [Concomitant]
     Active Substance: IPRATROPIUM BROMIDE
     Dosage: AS TREATMENT DRUG
  18. FLUTICASONE [Concomitant]
     Active Substance: FLUTICASONE
     Indication: Product used for unknown indication
     Dosage: 2 DF(PUFFS), BID
     Route: 065

REACTIONS (22)
  - General physical health deterioration [Unknown]
  - Asthmatic crisis [Unknown]
  - Asthmatic crisis [Recovered/Resolved]
  - Pneumonia [Recovering/Resolving]
  - Productive cough [Unknown]
  - Respiratory failure [Recovering/Resolving]
  - Sputum discoloured [Unknown]
  - Feeling hot [Unknown]
  - Feeling cold [Unknown]
  - Throat irritation [Unknown]
  - Bronchospasm [Unknown]
  - Allergy to vaccine [Unknown]
  - Gait disturbance [Unknown]
  - Dyspnoea [Unknown]
  - Asthma [Recovering/Resolving]
  - Feeling abnormal [Recovering/Resolving]
  - Malaise [Unknown]
  - Phlebitis [Unknown]
  - Asthenia [Unknown]
  - Vomiting [Unknown]
  - Headache [Not Recovered/Not Resolved]
  - Off label use [Unknown]

NARRATIVE: CASE EVENT DATE: 20160608
